FAERS Safety Report 16443357 (Version 1)
Quarter: 2019Q2

REPORT INFORMATION
  Report Type: Report from Study
  Country: None (occurrence: US)
  Receive Date: 20190618
  Receipt Date: 20190618
  Transmission Date: 20190711
  Serious: Yes (Hospitalization)
  Sender: FDA-Public Use
  Company Number: US-ABBVIE-18K-163-2395793-00

PATIENT
  Sex: Female

DRUGS (2)
  1. HUMIRA [Suspect]
     Active Substance: ADALIMUMAB
     Indication: RHEUMATOID ARTHRITIS
     Route: 058
     Dates: start: 20180612, end: 20180626
  2. HUMIRA [Suspect]
     Active Substance: ADALIMUMAB
     Route: 058
     Dates: start: 20181112, end: 201905

REACTIONS (10)
  - Rash pruritic [Unknown]
  - Blood magnesium decreased [Unknown]
  - Loss of personal independence in daily activities [Unknown]
  - Impaired self-care [Unknown]
  - Arthralgia [Not Recovered/Not Resolved]
  - Tooth abscess [Unknown]
  - Blood potassium decreased [Unknown]
  - Mobility decreased [Unknown]
  - Rash erythematous [Unknown]
  - Sepsis [Unknown]

NARRATIVE: CASE EVENT DATE: 2018
